FAERS Safety Report 9662343 (Version 2)
Quarter: 2013Q4

REPORT INFORMATION
  Report Type: Spontaneous
  Country: US (occurrence: US)
  Receive Date: 20131031
  Receipt Date: 20131031
  Transmission Date: 20140711
  Serious: No
  Sender: FDA-Public Use
  Company Number: US-PURDUE-USA-2011-0062378

PATIENT
  Age: 46 Year
  Sex: Male
  Weight: 400 kg

DRUGS (1)
  1. OXYCONTIN (NDA 22-272) [Suspect]
     Indication: BACK PAIN
     Dosage: 60 MG, QID
     Dates: start: 201012

REACTIONS (2)
  - Medication residue present [Unknown]
  - Drug ineffective [Unknown]
